FAERS Safety Report 17678877 (Version 1)
Quarter: 2020Q2

REPORT INFORMATION
  Report Type: Report from Study
  Country: US (occurrence: US)
  Receive Date: 20200417
  Receipt Date: 20200417
  Transmission Date: 20200714
  Serious: Yes (Other)
  Sender: FDA-Public Use
  Company Number: US-EMD SERONO-9156860

PATIENT
  Sex: Female

DRUGS (3)
  1. MAVENCLAD [Suspect]
     Active Substance: CLADRIBINE
     Dosage: YEAR ONE CYCLE TWO THERAPY: STARTED ON 15 NOV 2019, TOOK ONLY ONE DOSE OF 20MG AND STOPPED.
     Route: 048
     Dates: start: 20191115, end: 20191115
  2. MAVENCLAD [Suspect]
     Active Substance: CLADRIBINE
     Indication: MULTIPLE SCLEROSIS
     Dosage: YEAR ONE CYCLE ONE THERAPY.
     Route: 048
     Dates: start: 20191009, end: 20191013
  3. MAVENCLAD [Suspect]
     Active Substance: CLADRIBINE
     Dosage: YEAR ONE CYCLE TWO THERAPY (RESTARTED): TOOK REMAINING TABLETS OF YEAR ONE CYCLE TWO THERAPY.
     Route: 048
     Dates: start: 20200103, end: 20200106

REACTIONS (2)
  - Ear discomfort [Unknown]
  - Pneumonia [Unknown]
